FAERS Safety Report 18467094 (Version 1)
Quarter: 2020Q4

REPORT INFORMATION
  Report Type: Spontaneous
  Country: US (occurrence: US)
  Receive Date: 20201104
  Receipt Date: 20201104
  Transmission Date: 20210114
  Serious: Yes (Hospitalization)
  Sender: FDA-Public Use
  Company Number: None

PATIENT
  Sex: Male

DRUGS (15)
  1. GUANFACINE. [Concomitant]
     Active Substance: GUANFACINE
  2. IBUPROFEN. [Concomitant]
     Active Substance: IBUPROFEN
  3. MIRTAZAPINE. [Concomitant]
     Active Substance: MIRTAZAPINE
  4. PULMOZYME [Concomitant]
     Active Substance: DORNASE ALFA
  5. RISPERIDONE. [Concomitant]
     Active Substance: RISPERIDONE
  6. ORKAMBI [Concomitant]
     Active Substance: IVACAFTOR\LUMACAFTOR
  7. BUDESONIDE. [Concomitant]
     Active Substance: BUDESONIDE
  8. LANSOPRAZOLE. [Concomitant]
     Active Substance: LANSOPRAZOLE
  9. AQUADEKS [Concomitant]
     Active Substance: MINERALS\VITAMINS
  10. LAMOTRIGINE. [Concomitant]
     Active Substance: LAMOTRIGINE
  11. LEVALBUTEROL. [Concomitant]
     Active Substance: LEVALBUTEROL
  12. MIRALAX [Concomitant]
     Active Substance: POLYETHYLENE GLYCOL 3350
  13. CLONIDINE. [Concomitant]
     Active Substance: CLONIDINE
  14. XOPENEX HFA [Concomitant]
     Active Substance: LEVALBUTEROL TARTRATE
  15. ZENPEP [Suspect]
     Active Substance: PANCRELIPASE AMYLASE\PANCRELIPASE LIPASE\PANCRELIPASE PROTEASE
     Indication: COUGH
     Dosage: ?          OTHER STRENGTH:15,000U; TAKE 4 TO 5 CAPS PO TID WITH MEALS AND 2 CAPS WITH SNACKS (MAX 21 PER DAY)?
     Route: 048
     Dates: start: 20200626

REACTIONS (1)
  - Hospitalisation [None]
